FAERS Safety Report 18594794 (Version 1)
Quarter: 2020Q4

REPORT INFORMATION
  Report Type: Spontaneous
  Country: US (occurrence: US)
  Receive Date: 20201208
  Receipt Date: 20201208
  Transmission Date: 20210114
  Serious: Yes (Other)
  Sender: FDA-Public Use
  Company Number: None

PATIENT
  Age: 33 Year
  Sex: Female
  Weight: 65.77 kg

DRUGS (5)
  1. METFORMIN [Concomitant]
     Active Substance: METFORMIN HYDROCHLORIDE
  2. SUMATRIPTAN. [Concomitant]
     Active Substance: SUMATRIPTAN
  3. WOMEN^S MULTIVITAMIN [Concomitant]
  4. PARAGARD T 380A [Suspect]
     Active Substance: COPPER
     Dates: start: 20160411, end: 20200601
  5. PANTOMPROZOLE [Concomitant]

REACTIONS (3)
  - Device breakage [None]
  - Complication of device removal [None]
  - Embedded device [None]

NARRATIVE: CASE EVENT DATE: 20200601
